FAERS Safety Report 8593255-3 (Version None)
Quarter: 2012Q3

REPORT INFORMATION
  Report Type: 
  Country: None (occurrence: None)
  Receive Date: 20120814
  Receipt Date: 20120730
  Transmission Date: 20120928
  Serious: Yes (Other)
  Sender: FDA-Public Use
  Company Number: US-ASTRAZENECA-2011SE37839

PATIENT
  Age: 70 Year
  Sex: Female

DRUGS (2)
  1. PRILOSEC OTC [Suspect]
     Route: 048
  2. NEXIUM [Suspect]
     Route: 048

REACTIONS (13)
  - SENSATION OF FOREIGN BODY [None]
  - PAIN [None]
  - APHAGIA [None]
  - NEOPLASM MALIGNANT [None]
  - PHARYNGEAL DISORDER [None]
  - STRESS [None]
  - MALAISE [None]
  - APHONIA [None]
  - VOMITING [None]
  - DRUG DOSE OMISSION [None]
  - GASTROOESOPHAGEAL REFLUX DISEASE [None]
  - DYSPNOEA [None]
  - CHEST PAIN [None]
